FAERS Safety Report 5291348-X (Version None)
Quarter: 2007Q2

REPORT INFORMATION
  Report Type: 
  Country: None (occurrence: None)
  Receive Date: 20070409
  Receipt Date: 20070330
  Transmission Date: 20071010
  Serious: Yes (Hospitalization, Other)
  Sender: FDA-Public Use
  Company Number: US-MERCK-0704USA00170

PATIENT
  Age: 64 Year
  Sex: Female

DRUGS (3)
  1. FOSAMAX [Suspect]
     Indication: OSTEOPOROSIS
     Route: 048
     Dates: start: 19900101, end: 20070306
  2. FOSAMAX [Suspect]
     Route: 048
     Dates: start: 20070301
  3. TRAZODONE HYDROCHLORIDE [Concomitant]
     Route: 065

REACTIONS (2)
  - COMA [None]
  - CONVULSION [None]
